FAERS Safety Report 7776201-1 (Version None)
Quarter: 2011Q3

REPORT INFORMATION
  Report Type: 
  Country: None (occurrence: None)
  Receive Date: 20110926
  Receipt Date: 20110920
  Transmission Date: 20111222
  Serious: No
  Sender: FDA-Public Use
  Company Number: US-PFIZER INC-2011223733

PATIENT
  Sex: Male
  Weight: 95.238 kg

DRUGS (5)
  1. PRISTIQ [Suspect]
     Indication: DEPRESSION
     Dosage: 50 MG, 1X/DAY
     Route: 048
     Dates: start: 20100601
  2. METFORMIN [Concomitant]
     Indication: DIABETES MELLITUS
     Dosage: UNK
  3. INSULIN [Concomitant]
     Indication: DIABETES MELLITUS
     Dosage: UNK
  4. LUNESTA [Concomitant]
     Indication: SLEEP DISORDER
     Dosage: UNK
  5. PRISTIQ [Suspect]
     Indication: IRRITABILITY

REACTIONS (2)
  - FEELING ABNORMAL [None]
  - DRUG DOSE OMISSION [None]
